FAERS Safety Report 17667161 (Version 2)
Quarter: 2020Q2

REPORT INFORMATION
  Report Type: Spontaneous
  Country: US (occurrence: US)
  Receive Date: 20200414
  Receipt Date: 20200619
  Transmission Date: 20200713
  Serious: Yes (Congenital Anomaly, Other)
  Sender: FDA-Public Use
  Company Number: NVSC2020US099762

PATIENT
  Sex: Male

DRUGS (2)
  1. ZOFRAN [Suspect]
     Active Substance: ONDANSETRON HYDROCHLORIDE
     Indication: FOETAL EXPOSURE DURING PREGNANCY
     Dosage: MOTHER DOSE: 04 MG, TID, 08 MG QD
     Route: 064
  2. ZOFRAN ODT [Suspect]
     Active Substance: ONDANSETRON HYDROCHLORIDE
     Indication: FOETAL EXPOSURE DURING PREGNANCY
     Route: 064

REACTIONS (22)
  - Arrhythmia [Unknown]
  - Myocardial infarction [Unknown]
  - Staphylococcal infection [Unknown]
  - Atrial septal defect [Unknown]
  - Hypoplastic left heart syndrome [Unknown]
  - Renal impairment [Unknown]
  - Pulmonary hypertension [Unknown]
  - Cyanosis neonatal [Unknown]
  - Foetal exposure during pregnancy [Unknown]
  - Anxiety [Unknown]
  - Nerve injury [Unknown]
  - Gastrooesophageal reflux disease [Unknown]
  - Poor peripheral circulation [Unknown]
  - Hepatic fibrosis [Unknown]
  - Cardiac failure [Unknown]
  - Blood iron decreased [Unknown]
  - Attention deficit hyperactivity disorder [Unknown]
  - Post thrombotic syndrome [Unknown]
  - Oedema [Unknown]
  - Injury [Unknown]
  - Depression [Unknown]
  - Vitamin D decreased [Unknown]
